FAERS Safety Report 8502610-9 (Version None)
Quarter: 2012Q3

REPORT INFORMATION
  Report Type: 
  Country: None (occurrence: None)
  Receive Date: 20120711
  Receipt Date: 20120705
  Transmission Date: 20120928
  Serious: Yes (Other)
  Sender: FDA-Public Use
  Company Number: US-PFIZER INC-2012162740

PATIENT
  Sex: Female
  Weight: 111 kg

DRUGS (2)
  1. GABAPENTIN [Suspect]
     Indication: BACK PAIN
  2. GABAPENTIN [Suspect]
     Indication: PAIN IN EXTREMITY
     Dosage: 300 MG, 3X/DAY
     Route: 048
     Dates: start: 20080101

REACTIONS (1)
  - LIMB DISCOMFORT [None]
